FAERS Safety Report 10458621 (Version 1)
Quarter: 2014Q3

REPORT INFORMATION
  Report Type: Spontaneous
  Country: US (occurrence: None)
  Receive Date: 20140916
  Receipt Date: 20140916
  Transmission Date: 20150326
  Serious: Yes (Hospitalization)
  Sender: FDA-Public Use
  Company Number: None

PATIENT
  Age: 77 Year
  Sex: Male
  Weight: 108.1 kg

DRUGS (1)
  1. ZOLADEX [Suspect]
     Active Substance: GOSERELIN ACETATE
     Dates: start: 20140827

REACTIONS (3)
  - Fall [None]
  - Subdural haematoma [None]
  - Hypoaesthesia [None]

NARRATIVE: CASE EVENT DATE: 20140904
